FAERS Safety Report 10606048 (Version 1)
Quarter: 2014Q4

REPORT INFORMATION
  Report Type: Spontaneous
  Country: BR (occurrence: BR)
  Receive Date: 20141125
  Receipt Date: 20141125
  Transmission Date: 20150529
  Serious: Yes (Other)
  Sender: FDA-Public Use
  Company Number: BR-ASTRAZENECA-2014SE88241

PATIENT
  Age: 435 Month
  Sex: Female
  Weight: 55 kg

DRUGS (2)
  1. OMEGA 3 [Concomitant]
     Active Substance: OMEGA-3 FATTY ACIDS
     Indication: VITAMIN SUPPLEMENTATION
     Dosage: DAILY
     Route: 048
     Dates: start: 2013
  2. NEXIUM [Suspect]
     Active Substance: ESOMEPRAZOLE MAGNESIUM
     Indication: GASTROOESOPHAGEAL REFLUX DISEASE
     Dosage: DAILY
     Route: 048
     Dates: start: 201410, end: 20141110

REACTIONS (1)
  - Arrhythmia [Recovered/Resolved]

NARRATIVE: CASE EVENT DATE: 201410
